FAERS Safety Report 9467408 (Version 1)
Quarter: 2013Q3

REPORT INFORMATION
  Report Type: Spontaneous
  Country: US (occurrence: None)
  Receive Date: 20130819
  Receipt Date: 20130819
  Transmission Date: 20140515
  Serious: Yes (Life-Threatening)
  Sender: FDA-Public Use
  Company Number: None

PATIENT
  Age: 24 Year
  Sex: Female
  Weight: 75.75 kg

DRUGS (5)
  1. SEPTRA DS [Suspect]
     Indication: WRIST FRACTURE
     Dosage: 1 PILL BID ORAL
     Route: 048
     Dates: start: 20130815, end: 20130816
  2. VICODIN [Concomitant]
  3. BENADRYL [Concomitant]
  4. ZPACK [Concomitant]
  5. BCP [Concomitant]

REACTIONS (7)
  - Pruritus [None]
  - Erythema [None]
  - Dyspnoea [None]
  - Rash [None]
  - Pharyngeal oedema [None]
  - Wheezing [None]
  - Dizziness [None]
